FAERS Safety Report 18523308 (Version 1)
Quarter: 2020Q4

REPORT INFORMATION
  Report Type: Spontaneous
  Country: US (occurrence: US)
  Receive Date: 20201119
  Receipt Date: 20201119
  Transmission Date: 20210114
  Serious: No
  Sender: FDA-Public Use
  Company Number: US-ELI_LILLY_AND_COMPANY-US202011004293

PATIENT
  Sex: Male

DRUGS (3)
  1. ZYPREXA [Suspect]
     Active Substance: OLANZAPINE
     Indication: ANXIETY
     Dosage: 20 MG, EACH EVENING (BED TIME)
     Route: 048
     Dates: start: 20180223, end: 20180309
  2. ZYPREXA [Suspect]
     Active Substance: OLANZAPINE
     Indication: ANXIETY
     Dosage: 10 MG, EACH EVENING (BEDTIME)
     Route: 065
     Dates: start: 20180309, end: 20180312
  3. ZYPREXA [Suspect]
     Active Substance: OLANZAPINE
     Indication: ANXIETY
     Dosage: 5 MG, OTHER (BED TIME)
     Route: 065
     Dates: start: 20180312, end: 20180315

REACTIONS (1)
  - Gynaecomastia [Not Recovered/Not Resolved]
